FAERS Safety Report 11689636 (Version 1)
Quarter: 2015Q4

REPORT INFORMATION
  Report Type: Spontaneous
  Country: CH (occurrence: CH)
  Receive Date: 20151102
  Receipt Date: 20151102
  Transmission Date: 20160304
  Serious: Yes (Death)
  Sender: FDA-Public Use
  Company Number: CH-PFIZER INC-2015365664

PATIENT
  Age: 85 Year
  Sex: Male
  Weight: 89 kg

DRUGS (20)
  1. REMERON [Suspect]
     Active Substance: MIRTAZAPINE
     Dosage: 15 MG, 1X/DAY (30 MG 0-0-0-0.5)
     Route: 048
     Dates: end: 20150911
  2. PULMICORT TURBUHALER [Concomitant]
     Active Substance: BUDESONIDE
     Dosage: 2 MMOL, 1X/DAY
     Route: 055
     Dates: start: 20150908, end: 20150911
  3. ATORVASTATIN [Concomitant]
     Active Substance: ATORVASTATIN
     Dosage: 20 MG, 1X/DAY (0-0-1-0)
     Route: 048
     Dates: end: 20150911
  4. TOREM [Suspect]
     Active Substance: TORSEMIDE
     Dosage: UNK
     Dates: start: 20150909, end: 20150911
  5. DIOVAN [Suspect]
     Active Substance: VALSARTAN
     Dosage: 40 MG, 1X/DAY (80 MG 0-0-0.5)
     Route: 048
     Dates: end: 20150911
  6. QUETIAPIN [Suspect]
     Active Substance: QUETIAPINE
     Dosage: 40 MG, DAILY
     Route: 048
     Dates: start: 20150909, end: 20150909
  7. PARACETAMOL [Suspect]
     Active Substance: ACETAMINOPHEN
     Dosage: 1 G, 4X/DAY
     Dates: start: 20150904, end: 20150911
  8. XANAX [Concomitant]
     Active Substance: ALPRAZOLAM
     Dosage: 0.5 MG, 1X/DAY (1-0-0-0)
     Route: 048
     Dates: end: 20150911
  9. DOSPIR [Suspect]
     Active Substance: ALBUTEROL SULFATE\IPRATROPIUM BROMIDE
     Dosage: 1 DF, 4X/DAY
     Route: 055
     Dates: start: 20150906, end: 20150911
  10. SEROQUEL [Suspect]
     Active Substance: QUETIAPINE FUMARATE
     Dosage: 12.5 MG, 1X/DAY
     Route: 048
     Dates: start: 20150909, end: 20150909
  11. AUGMENTIN [Suspect]
     Active Substance: AMOXICILLIN\CLAVULANATE POTASSIUM
     Indication: PNEUMONIA
     Dosage: 2.2 G, 3X/DAY
     Route: 042
     Dates: start: 20150907, end: 20150908
  12. ASPIRIN CARDIO [Concomitant]
     Active Substance: ASPIRIN
     Dosage: 100 MG, 1X/DAY (1-0-0-0)
     Route: 048
     Dates: start: 20150909, end: 20150911
  13. QUETIAPIN [Suspect]
     Active Substance: QUETIAPINE
     Dosage: 55 MG, DAILY
     Route: 048
     Dates: start: 20150910, end: 20150910
  14. AZITHROMYCIN [Concomitant]
     Active Substance: AZITHROMYCIN ANHYDROUS
     Dosage: 250 MG, 3X WEEK (MONDAY, WEDNESDAY AND FRIDAY)
     Route: 048
     Dates: end: 20150907
  15. TAZOBAC [Suspect]
     Active Substance: PIPERACILLIN SODIUM\TAZOBACTAM SODIUM
     Indication: PNEUMONIA
     Dosage: 4.5 G, 3X/DAY
     Route: 042
     Dates: start: 20150908, end: 20150911
  16. EFFEXOR XR [Suspect]
     Active Substance: VENLAFAXINE HYDROCHLORIDE
     Dosage: 150 MG, 1X/DAY (150 MG 1-0-0-0)
     Route: 048
     Dates: end: 20150911
  17. NEXIUM CONTROL [Suspect]
     Active Substance: ESOMEPRAZOLE MAGNESIUM
     Dosage: 40 MG, UNK (1-0(1)-0)
     Route: 048
     Dates: end: 20150911
  18. CONCOR [Suspect]
     Active Substance: BISOPROLOL FUMARATE
     Dosage: 2.5 MG, 2X/DAY (0.5 - 0 - 0.5 - 0)
     Route: 048
     Dates: start: 20150911
  19. QUETIAPIN [Suspect]
     Active Substance: QUETIAPINE
     Dosage: 25 MG, 1X/DAY (IN THE EVENING)
     Dates: start: 20150911, end: 20150911
  20. ASPIRIN CARDIO [Concomitant]
     Active Substance: ASPIRIN
     Dosage: 100 MG, 1X/DAY (1-0-0-0)
     Route: 048
     Dates: end: 20150829

REACTIONS (3)
  - Cardiac failure [Fatal]
  - Hypokalaemia [Not Recovered/Not Resolved]
  - Transaminases increased [Not Recovered/Not Resolved]

NARRATIVE: CASE EVENT DATE: 20150910
